FAERS Safety Report 4276183-3 (Version None)
Quarter: 2004Q1

REPORT INFORMATION
  Report Type: 
  Country: None (occurrence: None)
  Receive Date: 20040121
  Receipt Date: 20020509
  Transmission Date: 20041129
  Serious: No
  Sender: FDA-Public Use
  Company Number: US-GLAXOSMITHKLINE-A0369628A

PATIENT
  Age: 51 Year
  Sex: Male

DRUGS (10)
  1. ZIAGEN [Suspect]
     Indication: HIV INFECTION
     Dosage: 300MG PER DAY
     Route: 048
  2. AGENERASE [Suspect]
     Route: 048
  3. EPIVIR [Concomitant]
     Route: 048
  4. SUSTIVA [Concomitant]
     Route: 050
  5. NORVIR [Concomitant]
     Route: 048
  6. NORVIR [Concomitant]
     Indication: HIV INFECTION
  7. GEMFIBROZIL [Concomitant]
  8. LOTENSIN [Concomitant]
     Indication: HYPERTENSION
  9. NIACIN [Concomitant]
  10. AMBIEN [Concomitant]
     Indication: SLEEP DISORDER

REACTIONS (8)
  - FAT REDISTRIBUTION [None]
  - FATIGUE [None]
  - LIPODYSTROPHY ACQUIRED [None]
  - LIPOMATOSIS [None]
  - MUSCLE ATROPHY [None]
  - NEUROPATHY [None]
  - PAIN [None]
  - PARAESTHESIA [None]
